FAERS Safety Report 5737222-3 (Version None)
Quarter: 2008Q2

REPORT INFORMATION
  Report Type: 
  Country: None (occurrence: None)
  Receive Date: 20080514
  Receipt Date: 20080509
  Transmission Date: 20081010
  Serious: Yes (Death)
  Sender: FDA-Public Use
  Company Number: PHFR2007IE02201

PATIENT
  Age: 31 Year
  Sex: Male

DRUGS (2)
  1. CLOZARIL [Suspect]
     Indication: SCHIZOPHRENIA
     Dosage: 400MG / DAY
     Route: 048
     Dates: start: 20050127
  2. ZOLPIDEM TARTRATE [Concomitant]
     Dosage: 10 MG, QD
     Route: 065

REACTIONS (2)
  - CARDIAC ARREST [None]
  - CIRCULATORY COLLAPSE [None]
